FAERS Safety Report 4415484-2 (Version None)
Quarter: 2004Q3

REPORT INFORMATION
  Report Type: 
  Country: None (occurrence: None)
  Receive Date: 20040729
  Receipt Date: 20040713
  Transmission Date: 20050211
  Serious: Yes (Hospitalization)
  Sender: FDA-Public Use
  Company Number: 196844

PATIENT
  Age: 52 Year
  Sex: Male
  Weight: 90.2658 kg

DRUGS (11)
  1. AVONEX [Suspect]
     Indication: MULTIPLE SCLEROSIS
     Dosage: 30 MCG QW IM
     Dates: start: 20011001, end: 20040201
  2. AVONEX [Suspect]
     Indication: MULTIPLE SCLEROSIS
     Dosage: 30 MC QW IM
     Dates: start: 20040201
  3. TRENTAL ^ROUSSEL^ [Concomitant]
  4. NOVOLIN 70/30 [Concomitant]
  5. ACTOS/USA/ [Concomitant]
  6. METFORMIN HCL [Concomitant]
  7. LIPITOR [Concomitant]
  8. NORVASC [Concomitant]
  9. COZAAR [Concomitant]
  10. DARVOCET-N 100 [Concomitant]
  11. MECLIZINE HYDROCHLORIDE [Concomitant]

REACTIONS (10)
  - ARTERIOGRAM CORONARY ABNORMAL [None]
  - CORONARY ARTERY DISEASE [None]
  - DIFFICULTY IN WALKING [None]
  - INCISION SITE HAEMORRHAGE [None]
  - INFLUENZA LIKE ILLNESS [None]
  - MULTIPLE ALLERGIES [None]
  - MUSCULAR WEAKNESS [None]
  - MYALGIA [None]
  - PLATELET COUNT DECREASED [None]
  - THROAT TIGHTNESS [None]
